FAERS Safety Report 4719502-3 (Version None)
Quarter: 2005Q3

REPORT INFORMATION
  Report Type: 
  Country: None (occurrence: None)
  Receive Date: 20050719
  Receipt Date: 20050719
  Transmission Date: 20060218
  Serious: Yes (Hospitalization)
  Sender: FDA-Public Use
  Company Number: None

PATIENT
  Age: 58 Year
  Sex: Male

DRUGS (18)
  1. VANCOMYCIN [Suspect]
     Indication: ABSCESS
     Dosage: 1GM   IV  Q12H
     Route: 042
     Dates: start: 20050315, end: 20050405
  2. VANCOMYCIN [Suspect]
     Indication: BONE DISORDER
     Dosage: 1GM   IV  Q12H
     Route: 042
     Dates: start: 20050315, end: 20050405
  3. AMYLASE/LIPASE/PROTEASE [Concomitant]
  4. CHLORDIAZEPOXIDE HCL [Concomitant]
  5. DILTIAZEM [Concomitant]
  6. FERROUS SULFATE TAB [Concomitant]
  7. FOLIC ACID [Concomitant]
  8. VITAMIN [Concomitant]
  9. LISINOPRIL [Concomitant]
  10. LORAZEPAM [Concomitant]
  11. METOCLOPRAMIDE HCL [Concomitant]
  12. MULTI-VITAMIN [Concomitant]
  13. OMEPRAZOLE [Concomitant]
  14. SODIUM CHLORIDE [Concomitant]
  15. SPIRONOLACTONE [Concomitant]
  16. THIAMINE HCL [Concomitant]
  17. TRAMADOL HCL [Concomitant]
  18. VANCOMYCIN [Concomitant]

REACTIONS (2)
  - DRUG LEVEL ABOVE THERAPEUTIC [None]
  - RENAL FAILURE ACUTE [None]
